FAERS Safety Report 20450247 (Version 1)
Quarter: 2022Q1

REPORT INFORMATION
  Report Type: Spontaneous
  Country: US (occurrence: US)
  Receive Date: 20220209
  Receipt Date: 20220209
  Transmission Date: 20220423
  Serious: No
  Sender: FDA-Public Use
  Company Number: US-SANOFI-00959436

PATIENT
  Sex: Female

DRUGS (1)
  1. DUPIXENT [Suspect]
     Active Substance: DUPILUMAB
     Dosage: UNK
     Dates: start: 202112

REACTIONS (5)
  - Injection site erythema [Unknown]
  - Condition aggravated [Unknown]
  - Injection site discharge [Unknown]
  - Condition aggravated [Unknown]
  - Eye pruritus [Unknown]
